FAERS Safety Report 9243677 (Version 1)
Quarter: 2013Q2

REPORT INFORMATION
  Report Type: Spontaneous
  Country: DE (occurrence: DE)
  Receive Date: 20130422
  Receipt Date: 20130422
  Transmission Date: 20140414
  Serious: Yes (Other)
  Sender: FDA-Public Use
  Company Number: DE-009507513-1304DEU008570

PATIENT
  Age: 78 Year
  Sex: Female

DRUGS (1)
  1. LORZAAR PROTECT 50MG FILMTABLETTEN [Suspect]
     Dosage: UNK
     Route: 048
     Dates: start: 20130410

REACTIONS (4)
  - Heart valve replacement [Unknown]
  - Cough [Unknown]
  - Sneezing [Unknown]
  - Sleep disorder [Unknown]
